FAERS Safety Report 11357723 (Version 3)
Quarter: 2015Q3

REPORT INFORMATION
  Report Type: Spontaneous
  Country: US (occurrence: US)
  Receive Date: 20150803
  Receipt Date: 20150903
  Transmission Date: 20151125
  Serious: No
  Sender: FDA-Public Use
  Company Number: US-ELI_LILLY_AND_COMPANY-US201203004423

PATIENT
  Age: 54 Year
  Sex: Male

DRUGS (7)
  1. CYMBALTA [Suspect]
     Active Substance: DULOXETINE HYDROCHLORIDE
     Dosage: 60 MG, QD
     Route: 065
     Dates: start: 20111010, end: 20120306
  2. QUINIDINE SULFATE. [Concomitant]
     Active Substance: QUINIDINE SULFATE
     Indication: AFFECT LABILITY
     Dosage: 10 MG, QD
     Route: 065
     Dates: start: 20111215, end: 20111221
  3. ZYPREXA [Suspect]
     Active Substance: OLANZAPINE
     Dosage: 10 MG, QD
     Route: 065
     Dates: start: 20110911, end: 20120127
  4. DEXTROMETHORPHAN HYDROBROMIDE. [Concomitant]
     Active Substance: DEXTROMETHORPHAN HYDROBROMIDE
     Indication: AFFECT LABILITY
     Dosage: 20 MG, QD
     Route: 065
     Dates: start: 20111215, end: 20111221
  5. CYMBALTA [Suspect]
     Active Substance: DULOXETINE HYDROCHLORIDE
     Dosage: 30 MG, QD
     Route: 065
     Dates: start: 20120307
  6. DEXTROMETHORPHAN HYDROBROMIDE. [Concomitant]
     Active Substance: DEXTROMETHORPHAN HYDROBROMIDE
     Dosage: 20 MG, BID
     Route: 065
     Dates: start: 20111222
  7. QUINIDINE SULFATE. [Concomitant]
     Active Substance: QUINIDINE SULFATE
     Dosage: 10 MG, BID
     Route: 065
     Dates: start: 20111222

REACTIONS (3)
  - Flat affect [Not Recovered/Not Resolved]
  - Drug interaction [Unknown]
  - Hypersomnia [Not Recovered/Not Resolved]
